FAERS Safety Report 24942353 (Version 1)
Quarter: 2025Q1

REPORT INFORMATION
  Report Type: Spontaneous
  Country: US (occurrence: US)
  Receive Date: 20250207
  Receipt Date: 20250207
  Transmission Date: 20250409
  Serious: Yes (Other)
  Sender: AMGEN
  Company Number: US-AMGEN-USASP2025019460

PATIENT
  Age: 59 Year
  Sex: Female

DRUGS (14)
  1. BEVACIZUMAB [Suspect]
     Active Substance: BEVACIZUMAB
     Indication: Cervix cancer metastatic
     Route: 065
  2. TISOTUMAB VEDOTIN [Suspect]
     Active Substance: TISOTUMAB VEDOTIN
     Indication: Cervix cancer metastatic
     Route: 065
  3. AMLODIPINE [Concomitant]
     Active Substance: AMLODIPINE BESYLATE
     Indication: Hypertension
  4. LISINOPRIL [Concomitant]
     Active Substance: LISINOPRIL
     Indication: Hypertension
  5. FLUOROURACIL [Concomitant]
     Active Substance: FLUOROURACIL
     Indication: Cervix cancer metastatic
  6. CISPLATIN [Concomitant]
     Active Substance: CISPLATIN
     Indication: Cervix cancer metastatic
  7. CARBOPLATIN [Concomitant]
     Active Substance: CARBOPLATIN
     Indication: Cervix cancer metastatic
  8. PACLITAXEL [Concomitant]
     Active Substance: PACLITAXEL
     Indication: Cervix cancer metastatic
  9. IVERMECTIN [Concomitant]
     Active Substance: IVERMECTIN
     Indication: Cervix cancer metastatic
  10. PYRANTEL PAMOATE [Concomitant]
     Active Substance: PYRANTEL PAMOATE
     Indication: Cervix cancer metastatic
  11. PRAZIQUANTEL [Concomitant]
     Active Substance: PRAZIQUANTEL
     Indication: Cervix cancer metastatic
  12. NYSTATIN [Concomitant]
     Active Substance: NYSTATIN
     Indication: Cervix cancer metastatic
  13. WORMWOOD [Concomitant]
     Active Substance: WORMWOOD
     Indication: Cervix cancer metastatic
  14. VITAMIN C [Concomitant]
     Active Substance: ASCORBIC ACID
     Indication: Cervix cancer metastatic

REACTIONS (8)
  - Cervix cancer metastatic [Unknown]
  - Symblepharon [Not Recovered/Not Resolved]
  - Subconjunctival fibrosis [Unknown]
  - Treatment failure [Unknown]
  - Urinary tract infection [Unknown]
  - Conjunctivitis [Recovered/Resolved]
  - Conjunctival hyperaemia [Unknown]
  - Eye infection staphylococcal [Unknown]
